FAERS Safety Report 7482737-3 (Version None)
Quarter: 2011Q2

REPORT INFORMATION
  Report Type: 
  Country: None (occurrence: None)
  Receive Date: 20110516
  Receipt Date: 20110513
  Transmission Date: 20111010
  Serious: Yes (Life-Threatening, Hospitalization)
  Sender: FDA-Public Use
  Company Number: US-B.I. PHARMACEUTICALS,INC./RIDGEFIELD-2011-BP-13042BP

PATIENT
  Age: 79 Year
  Sex: Male

DRUGS (9)
  1. PRADAXA [Suspect]
     Indication: ATRIAL FIBRILLATION
     Dosage: 300 MG
     Route: 048
     Dates: start: 20110217, end: 20110508
  2. LIVALO [Concomitant]
     Indication: HYPERLIPIDAEMIA
     Dosage: 2 MG
     Route: 048
  3. PRILOSEC OTC [Concomitant]
     Indication: GASTROOESOPHAGEAL REFLUX DISEASE
     Dosage: 20 MG
     Route: 048
  4. VITAMIN D [Concomitant]
     Indication: PROPHYLAXIS
     Dosage: 1000 U
     Route: 048
  5. CO Q10 [Concomitant]
     Indication: HYPERLIPIDAEMIA
     Dosage: 100 MG
     Route: 048
  6. MULTAQ [Concomitant]
     Indication: HYPERTENSION
     Dosage: 800 MG
     Route: 048
  7. MULTAQ [Concomitant]
     Indication: ATRIAL FIBRILLATION
  8. ASPIRIN [Concomitant]
     Indication: PROPHYLAXIS
     Dosage: 81 MG
     Route: 048
  9. TOPROL-XL [Concomitant]
     Indication: HYPERTENSION
     Dosage: 50 MG
     Route: 048

REACTIONS (5)
  - PYREXIA [None]
  - DEHYDRATION [None]
  - PALPITATIONS [None]
  - MYOCARDIAL INFARCTION [None]
  - CEREBROVASCULAR ACCIDENT [None]
